FAERS Safety Report 13387092 (Version 2)
Quarter: 2017Q2

REPORT INFORMATION
  Report Type: Report from Study
  Country: US (occurrence: US)
  Receive Date: 20170330
  Receipt Date: 20170505
  Transmission Date: 20170830
  Serious: Yes (Other)
  Sender: FDA-Public Use
  Company Number: US-GILEAD-2017-0265058

PATIENT
  Age: 75 Year
  Sex: Female

DRUGS (13)
  1. AMBRISENTAN [Suspect]
     Active Substance: AMBRISENTAN
     Indication: PULMONARY HYPERTENSION
     Dosage: 5 MG, QD
     Route: 065
     Dates: start: 20140722
  2. VITAMIN D                          /00107901/ [Concomitant]
     Active Substance: ERGOCALCIFEROL
  3. FLOVENT [Concomitant]
     Active Substance: FLUTICASONE PROPIONATE
  4. PROBIOTIC                          /06395501/ [Concomitant]
     Active Substance: BIFIDOBACTERIUM ANIMALIS SUBSP. LACTIS
  5. ORENITRAM [Suspect]
     Active Substance: TREPROSTINIL
     Indication: PRODUCT USED FOR UNKNOWN INDICATION
     Dosage: .75 MG, TID
     Route: 065
     Dates: start: 20161103
  6. HECTOROL [Concomitant]
     Active Substance: DOXERCALCIFEROL
  7. RENVELA [Concomitant]
     Active Substance: SEVELAMER CARBONATE
  8. VITAMIN B [Concomitant]
     Active Substance: VITAMIN B
  9. GABAPENTIN. [Concomitant]
     Active Substance: GABAPENTIN
  10. LACTULOSE. [Concomitant]
     Active Substance: LACTULOSE
  11. COLACE [Concomitant]
     Active Substance: DOCUSATE SODIUM
  12. ASPIRIN                            /00002701/ [Concomitant]
     Active Substance: ASPIRIN
  13. ONDANSETRON [Concomitant]
     Active Substance: ONDANSETRON

REACTIONS (7)
  - Muscle spasms [Unknown]
  - Unevaluable event [Not Recovered/Not Resolved]
  - Dyspnoea [Unknown]
  - Influenza [Not Recovered/Not Resolved]
  - Chest discomfort [Not Recovered/Not Resolved]
  - Dialysis [Unknown]
  - Upper respiratory tract congestion [Not Recovered/Not Resolved]

NARRATIVE: CASE EVENT DATE: 20160327
